FAERS Safety Report 6713856-4 (Version None)
Quarter: 2010Q2

REPORT INFORMATION
  Report Type: 
  Country: None (occurrence: None)
  Receive Date: 20100506
  Receipt Date: 20100420
  Transmission Date: 20101027
  Serious: Yes (Other)
  Sender: FDA-Public Use
  Company Number: US-MERCK-1005USA00424

PATIENT

DRUGS (6)
  1. HYDRODIURIL [Suspect]
     Route: 048
  2. ATORVASTATIN [Suspect]
     Route: 065
  3. ATENOLOL [Suspect]
     Route: 065
  4. GABAPENTIN [Suspect]
     Route: 065
  5. PROPOXYPHENE [Suspect]
     Route: 065
  6. ACETAMINOPHEN [Suspect]
     Route: 065

REACTIONS (1)
  - RHABDOMYOLYSIS [None]
